FAERS Safety Report 7943828 (Version 2)
Quarter: 2012Q4

REPORT INFORMATION
  Report Type: 
  Country: US (occurrence: US)
  Receive Date: 20110513
  Receipt Date: 20120912
  Transmission Date: 20130627
  Serious: Yes (Death, Other)
  Sender: FDA-Public Use
  Company Number: PHHY2011US39323

PATIENT
  Age: 42 Year
  Sex: Male

DRUGS (6)
  1. IMATINIB [Suspect]
     Indication: ACUTE LYMPHOCYTIC LEUKAEMIA RECURRENT
     Dosage: 400 mg, daily
     Route: 048
  2. NILOTINIB [Suspect]
     Dosage: 400 mg, BID
  3. CYTARABINE [Suspect]
     Indication: ACUTE LYMPHOCYTIC LEUKAEMIA
  4. MITOXANTRONE [Suspect]
  5. DASATINIB [Suspect]
     Dosage: 100 mg, daily
  6. CLOFARABINE [Suspect]

REACTIONS (8)
  - Acute lymphocytic leukaemia [Fatal]
  - Subdural haematoma [Recovered/Resolved]
  - Swelling face [Unknown]
  - Hypokinesia [Unknown]
  - Mental status changes [Not Recovered/Not Resolved]
  - Thrombocytopenia [Unknown]
  - Micturition disorder [Unknown]
  - Drug ineffective [Unknown]
